FAERS Safety Report 18625197 (Version 1)
Quarter: 2020Q4

REPORT INFORMATION
  Report Type: Report from Study
  Country: US (occurrence: US)
  Receive Date: 20201217
  Receipt Date: 20201217
  Transmission Date: 20210114
  Serious: Yes (Hospitalization)
  Sender: FDA-Public Use
  Company Number: US-BIOGEN-2020BI00953677

PATIENT
  Age: 75 Year
  Sex: Female

DRUGS (5)
  1. TECFIDERA [Suspect]
     Active Substance: DIMETHYL FUMARATE
     Route: 065
     Dates: start: 20130521
  2. TECFIDERA [Suspect]
     Active Substance: DIMETHYL FUMARATE
     Indication: MULTIPLE SCLEROSIS
     Dosage: MAINTENANCE DOSE
     Route: 065
     Dates: start: 20161025, end: 20161031
  3. TECFIDERA [Suspect]
     Active Substance: DIMETHYL FUMARATE
     Dosage: MAINTENANCE DOSE
     Route: 065
     Dates: start: 20161101, end: 20201120
  4. TECFIDERA [Suspect]
     Active Substance: DIMETHYL FUMARATE
     Route: 065
     Dates: start: 20130521
  5. TECFIDERA [Suspect]
     Active Substance: DIMETHYL FUMARATE
     Route: 065
     Dates: start: 20161026

REACTIONS (13)
  - Cognitive disorder [Unknown]
  - Gastric disorder [Unknown]
  - Skin mass [Unknown]
  - Fall [Recovered/Resolved]
  - Confusional state [Unknown]
  - Contusion [Unknown]
  - Musculoskeletal disorder [Unknown]
  - Head injury [Recovered/Resolved]
  - Bradykinesia [Unknown]
  - Nausea [Unknown]
  - Vein disorder [Not Recovered/Not Resolved]
  - Memory impairment [Unknown]
  - Flushing [Unknown]

NARRATIVE: CASE EVENT DATE: 20201123
